FAERS Safety Report 13621417 (Version 1)
Quarter: 2017Q2

REPORT INFORMATION
  Report Type: Spontaneous
  Country: US (occurrence: US)
  Receive Date: 20170607
  Receipt Date: 20170607
  Transmission Date: 20170830
  Serious: No
  Sender: FDA-Public Use
  Company Number: US-PFIZER INC-2017245640

PATIENT
  Sex: Female

DRUGS (1)
  1. ADVIL [Suspect]
     Active Substance: IBUPROFEN
     Dosage: TOOK 4 AT 2 DIFFERENT TIMES

REACTIONS (4)
  - Product coating issue [Unknown]
  - Dysphagia [Unknown]
  - Product use complaint [Unknown]
  - Dysgeusia [Unknown]
